FAERS Safety Report 5143851-0 (Version None)
Quarter: 2006Q4

REPORT INFORMATION
  Report Type: 
  Country: None (occurrence: None)
  Receive Date: 20061102
  Receipt Date: 20061102
  Transmission Date: 20070319
  Serious: No
  Sender: FDA-Public Use
  Company Number: None

PATIENT
  Age: 62 Year
  Sex: Female
  Weight: 143.3367 kg

DRUGS (2)
  1. POTASSIUM CHLORIDE [Suspect]
     Indication: HYPOKALAEMIA
     Dosage: 30 MEQ TID PO   PRIOR TO 2001
     Route: 048
  2. LASIX [Concomitant]

REACTIONS (1)
  - ABDOMINAL PAIN UPPER [None]
